FAERS Safety Report 5786802-8 (Version None)
Quarter: 2008Q2

REPORT INFORMATION
  Report Type: 
  Country: None (occurrence: None)
  Receive Date: 20080620
  Receipt Date: 20080610
  Transmission Date: 20081010
  Serious: Yes (Other)
  Sender: FDA-Public Use
  Company Number: B0525600A

PATIENT
  Age: 23 Year
  Sex: Female

DRUGS (3)
  1. SUMATRIPTAN SUCCINATE [Suspect]
     Dosage: 70 MG / TWICE PER DAY /
  2. DIHYDROERGOTAMINE MESYLATE [Suspect]
     Indication: MIGRAINE
     Dosage: TWICE PER DAY / INTRAMUSCUL
     Route: 030
  3. BIRTH CONTROL [Concomitant]

REACTIONS (2)
  - ISCHAEMIC CEREBRAL INFARCTION [None]
  - VASCULITIS [None]
